FAERS Safety Report 17124631 (Version 2)
Quarter: 2020Q1

REPORT INFORMATION
  Report Type: Spontaneous
  Country: US (occurrence: US)
  Receive Date: 20191206
  Receipt Date: 20200218
  Transmission Date: 20200409
  Serious: Yes (Other)
  Sender: FDA-Public Use
  Company Number: US-SA-2019SA336676

PATIENT
  Age: 32 Year
  Sex: Female
  Weight: 95 kg

DRUGS (2)
  1. TAXOTERE [Suspect]
     Active Substance: DOCETAXEL
     Indication: BREAST CANCER FEMALE
     Dosage: UNKNOWN Q3W
     Route: 042
     Dates: start: 20101213, end: 20101213
  2. TAXOTERE [Suspect]
     Active Substance: DOCETAXEL
     Dosage: UNKNOWN Q3W
     Route: 042
     Dates: start: 201103, end: 201103

REACTIONS (2)
  - Psychological trauma [Unknown]
  - Alopecia [Recovered/Resolved]

NARRATIVE: CASE EVENT DATE: 201109
